FAERS Safety Report 6330544-7 (Version None)
Quarter: 2009Q3

REPORT INFORMATION
  Report Type: 
  Country: None (occurrence: None)
  Receive Date: 20090826
  Receipt Date: 20090826
  Transmission Date: 20100115
  Serious: Yes (Disabling)
  Sender: FDA-Public Use
  Company Number: None

PATIENT
  Age: 21 Year
  Sex: Male
  Weight: 70.3075 kg

DRUGS (1)
  1. ALLI 90MG ROCHE/GLAXO [Suspect]
     Indication: WEIGHT DECREASED
     Dosage: 90MG 3X DAILY PO
     Route: 048
     Dates: start: 20060111, end: 20080301

REACTIONS (1)
  - HEPATIC ENZYME INCREASED [None]
